FAERS Safety Report 6779447-4 (Version None)
Quarter: 2010Q2

REPORT INFORMATION
  Report Type: 
  Country: None (occurrence: None)
  Receive Date: 20100618
  Receipt Date: 20100611
  Transmission Date: 20101027
  Serious: Yes (Other)
  Sender: FDA-Public Use
  Company Number: JP-PFIZER INC-2010069538

PATIENT
  Age: 65 Year
  Sex: Female

DRUGS (6)
  1. AROMASIN [Suspect]
     Indication: BREAST CANCER
     Dosage: 25 MG, 1X/DAY
     Route: 048
  2. KEISHIBUKURYOUGAN [Concomitant]
     Dosage: UNK
  3. CYANOCOBALAMIN [Concomitant]
     Dosage: UNK
  4. CEROCRAL [Concomitant]
     Dosage: UNK
  5. CINAL [Concomitant]
     Dosage: UNK
  6. TRANSAMIN [Concomitant]
     Dosage: UNK

REACTIONS (1)
  - LENTIGO [None]
